FAERS Safety Report 9496244 (Version 1)
Quarter: 2013Q3

REPORT INFORMATION
  Report Type: Spontaneous
  Country: GB (occurrence: None)
  Receive Date: 20130829
  Receipt Date: 20130829
  Transmission Date: 20140515
  Serious: Yes (Other)
  Sender: FDA-Public Use
  Company Number: AUR-APL-2013-06937

PATIENT
  Age: 47 Year
  Sex: Male

DRUGS (3)
  1. RIBAVIRIN (RIBAVIRIN) [Suspect]
     Indication: HEPATITIS C
     Dosage: (2 IN 1 D)
     Route: 048
     Dates: start: 20121109
  2. INCIVO (TELAPREVIR) [Suspect]
     Indication: HEPATITIS C
     Dosage: (750 MG, 3 IN 1 D)
     Route: 048
     Dates: start: 20121109
  3. INTERFERON ALFA-2A [Suspect]
     Indication: HEPATITIS C
     Dosage: (1 IN 1 WK)
     Route: 058
     Dates: start: 20121109

REACTIONS (12)
  - Insomnia [None]
  - Depressed mood [None]
  - Anal pruritus [None]
  - Fatigue [None]
  - Proctalgia [None]
  - Rash [None]
  - Dysgeusia [None]
  - Myalgia [None]
  - Rectal haemorrhage [None]
  - Pruritus [None]
  - Nausea [None]
  - Depression [None]
